FAERS Safety Report 7949521-5 (Version None)
Quarter: 2011Q4

REPORT INFORMATION
  Report Type: 
  Country: None (occurrence: None)
  Receive Date: 20111125
  Receipt Date: 20111110
  Transmission Date: 20120403
  Serious: Yes (Death, Other)
  Sender: FDA-Public Use
  Company Number: 2011-01274

PATIENT
  Age: 73 Year
  Sex: Male

DRUGS (1)
  1. LISINOPRIL [Suspect]
     Indication: PRODUCT USED FOR UNKNOWN INDICATION
     Dosage: 5 MG 95 MG, (1 IN 1 D) PER ORAL
     Route: 048
     Dates: start: 20090401

REACTIONS (2)
  - CARDIAC FAILURE CONGESTIVE [None]
  - COUGH [None]
